FAERS Safety Report 6386481-5 (Version None)
Quarter: 2009Q4

REPORT INFORMATION
  Report Type: 
  Country: None (occurrence: None)
  Receive Date: 20091002
  Receipt Date: 20090617
  Transmission Date: 20100525
  Serious: Yes (Other)
  Sender: FDA-Public Use
  Company Number: US-ASTRAZENECA-2009UW15667

PATIENT
  Age: 84 Year
  Sex: Female
  Weight: 54.4 kg

DRUGS (4)
  1. ARIMIDEX [Suspect]
     Indication: BREAST CANCER
     Route: 048
     Dates: start: 20080801
  2. ZOCOR [Concomitant]
  3. ASPIRIN [Concomitant]
  4. ANTIHYPERTENSIVES [Concomitant]

REACTIONS (5)
  - ARTHRITIS [None]
  - BLOOD PRESSURE INCREASED [None]
  - BREAST CANCER RECURRENT [None]
  - DIZZINESS [None]
  - HEADACHE [None]
